FAERS Safety Report 5542804-8 (Version None)
Quarter: 2007Q4

REPORT INFORMATION
  Report Type: 
  Country: None (occurrence: None)
  Receive Date: 20071210
  Receipt Date: 20071128
  Transmission Date: 20080405
  Serious: Yes (Death, Hospitalization, Other)
  Sender: FDA-Public Use
  Company Number: US-ELI_LILLY_AND_COMPANY-US200711006341

PATIENT
  Sex: Female

DRUGS (2)
  1. FORTEO [Suspect]
     Indication: OSTEOPOROSIS
     Dates: start: 20070701, end: 20071002
  2. SYNTHROID [Concomitant]
     Indication: THYROID DISORDER

REACTIONS (4)
  - CARDIAC DISORDER [None]
  - CHEST PAIN [None]
  - PAIN [None]
  - PULMONARY THROMBOSIS [None]
